FAERS Safety Report 6738953-9 (Version None)
Quarter: 2010Q2

REPORT INFORMATION
  Report Type: 
  Country: None (occurrence: None)
  Receive Date: 20100521
  Receipt Date: 20100511
  Transmission Date: 20101027
  Serious: Yes (Other)
  Sender: FDA-Public Use
  Company Number: US-2010-1116

PATIENT
  Age: 54 Year
  Sex: Female

DRUGS (2)
  1. VINORELBINE [Suspect]
     Dosage: 25 MG/M2 IV
     Route: 042
  2. TRASTUZUMAB [Concomitant]

REACTIONS (1)
  - RASH [None]
